FAERS Safety Report 25634452 (Version 1)
Quarter: 2025Q3

REPORT INFORMATION
  Report Type: Spontaneous
  Country: US (occurrence: None)
  Receive Date: 20250801
  Receipt Date: 20250801
  Transmission Date: 20251021
  Serious: Yes (Hospitalization)
  Sender: FDA-CTU
  Company Number: None

PATIENT
  Sex: Male

DRUGS (4)
  1. RECOMBINATE [Suspect]
     Active Substance: ANTIHEMOPHILIC FACTOR, HUMAN RECOMBINANT
     Indication: Factor VIII deficiency
     Route: 041
     Dates: start: 20250501
  2. HEMLIBRA [Suspect]
     Active Substance: EMICIZUMAB-KXWH
  3. BLUNT FILTER NEEDL 18GX1-1/2 [Concomitant]
  4. RECOMBINATE [Suspect]
     Active Substance: ANTIHEMOPHILIC FACTOR, HUMAN RECOMBINANT

REACTIONS (3)
  - Haemorrhage [None]
  - Traumatic haemorrhage [None]
  - Spontaneous haemorrhage [None]
